APPROVED DRUG PRODUCT: SOTRET
Active Ingredient: ISOTRETINOIN
Strength: 30MG
Dosage Form/Route: CAPSULE;ORAL
Application: A076503 | Product #001
Applicant: SUN PHARMACEUTICAL INDUSTRIES LTD
Approved: Jun 20, 2003 | RLD: No | RS: No | Type: DISCN